FAERS Safety Report 15607828 (Version 1)
Quarter: 2018Q4

REPORT INFORMATION
  Report Type: Spontaneous
  Country: PL (occurrence: PL)
  Receive Date: 20181112
  Receipt Date: 20181112
  Transmission Date: 20190205
  Serious: Yes (Life-Threatening, Hospitalization)
  Sender: FDA-Public Use
  Company Number: PL-PFIZER INC-2018460723

PATIENT
  Age: 61 Year
  Sex: Male
  Weight: 77 kg

DRUGS (4)
  1. METYPRED [METHYLPREDNISOLONE] [Concomitant]
     Dosage: 4 MG, (1X4MG)
     Route: 048
     Dates: start: 2004
  2. LEFLUNOMID MEDAC [Suspect]
     Active Substance: LEFLUNOMIDE
     Indication: RHEUMATOID ARTHRITIS
     Dosage: 20 MG, (1X20MG)
     Route: 048
     Dates: end: 20181022
  3. SULFASALAZINE. [Suspect]
     Active Substance: SULFASALAZINE
     Indication: RHEUMATOID ARTHRITIS
     Dosage: 1000 MG, (1X1000 MG)
     Route: 048
     Dates: start: 2017, end: 20181022
  4. PROSTAMNIC [Concomitant]
     Dosage: 4 MG, (1X4MG)
     Route: 048
     Dates: start: 2017

REACTIONS (2)
  - Pyrexia [Recovering/Resolving]
  - Agranulocytosis [Recovering/Resolving]

NARRATIVE: CASE EVENT DATE: 20181019
